FAERS Safety Report 6671777-X (Version None)
Quarter: 2010Q2

REPORT INFORMATION
  Report Type: 
  Country: None (occurrence: None)
  Receive Date: 20100406
  Receipt Date: 20100406
  Transmission Date: 20101027
  Serious: Yes (Disabling)
  Sender: FDA-Public Use
  Company Number: None

PATIENT
  Age: 23 Year
  Sex: Female
  Weight: 54.4316 kg

DRUGS (1)
  1. LACOSAMIDE [Suspect]
     Indication: EPILEPSY
     Dosage: 200MG BID PO
     Route: 048
     Dates: start: 20100401, end: 20100405

REACTIONS (3)
  - ABASIA [None]
  - DIZZINESS [None]
  - MUSCULAR WEAKNESS [None]
